FAERS Safety Report 8515282-4 (Version None)
Quarter: 2012Q3

REPORT INFORMATION
  Report Type: 
  Country: None (occurrence: None)
  Receive Date: 20120717
  Receipt Date: 20120712
  Transmission Date: 20120928
  Serious: Yes (Death)
  Sender: FDA-Public Use
  Company Number: BR-ROCHE-1088054

PATIENT
  Age: 61 Year
  Sex: Female

DRUGS (5)
  1. MABTHERA [Suspect]
     Dosage: SECOND CYCLE
     Route: 042
     Dates: start: 20100901, end: 20101001
  2. MABTHERA [Suspect]
     Dosage: FIFTH CYCLE
     Route: 042
     Dates: start: 20120413
  3. MABTHERA [Suspect]
     Dosage: FOURTH CYCLE
     Route: 042
     Dates: start: 20111022, end: 20111104
  4. MABTHERA [Suspect]
     Dosage: THIRD CYCLE
     Route: 042
     Dates: start: 20110401, end: 20110415
  5. MABTHERA [Suspect]
     Indication: RHEUMATOID ARTHRITIS
     Dosage: FIRST CYCLE
     Route: 042
     Dates: start: 20090801, end: 20090901

REACTIONS (1)
  - DEATH [None]
